FAERS Safety Report 23131960 (Version 1)
Quarter: 2023Q4

REPORT INFORMATION
  Report Type: Spontaneous
  Country: FR (occurrence: FR)
  Receive Date: 20231101
  Receipt Date: 20231101
  Transmission Date: 20240110
  Serious: Yes (Hospitalization, Other)
  Sender: FDA-Public Use
  Company Number: FR-Indoco-000470

PATIENT
  Age: 34 Year
  Sex: Female

DRUGS (10)
  1. NEOSTIGMINE METHYLSULFATE [Suspect]
     Active Substance: NEOSTIGMINE METHYLSULFATE
     Indication: Neck pain
     Dosage: CUMULATIVE DOSE UNTIL FIRST REACTION :1.5 MG
     Route: 042
  2. ATROPINE SULFATE [Suspect]
     Active Substance: ATROPINE SULFATE
     Indication: Post lumbar puncture syndrome
     Dosage: CUMULATIVE DOSE UNTIL FIRST REACTION :0.75 MG
     Route: 042
  3. TRAMADOL [Concomitant]
     Active Substance: TRAMADOL\TRAMADOL HYDROCHLORIDE
     Indication: Post lumbar puncture syndrome
  4. NEFOPAM [Concomitant]
     Active Substance: NEFOPAM
     Indication: Neck pain
  5. ACETAMINOPHEN [Concomitant]
     Active Substance: ACETAMINOPHEN
     Indication: Neck pain
  6. ATROPINE SULFATE [Suspect]
     Active Substance: ATROPINE SULFATE
     Indication: Neck pain
     Dosage: CUMULATIVE DOSE UNTIL FIRST REACTION :0.75 MG
     Route: 042
  7. NEOSTIGMINE METHYLSULFATE [Suspect]
     Active Substance: NEOSTIGMINE METHYLSULFATE
     Indication: Post lumbar puncture syndrome
     Dosage: CUMULATIVE DOSE UNTIL FIRST REACTION :1.5 MG
     Route: 042
  8. TRAMADOL [Concomitant]
     Active Substance: TRAMADOL\TRAMADOL HYDROCHLORIDE
     Indication: Neck pain
  9. NEFOPAM [Concomitant]
     Active Substance: NEFOPAM
     Indication: Post lumbar puncture syndrome
  10. ACETAMINOPHEN [Concomitant]
     Active Substance: ACETAMINOPHEN
     Indication: Post lumbar puncture syndrome

REACTIONS (2)
  - Reversible cerebral vasoconstriction syndrome [Recovered/Resolved]
  - Off label use [Unknown]
